FAERS Safety Report 23591753 (Version 1)
Quarter: 2024Q1

REPORT INFORMATION
  Report Type: Spontaneous
  Country: US (occurrence: None)
  Receive Date: 20240304
  Receipt Date: 20240304
  Transmission Date: 20240410
  Serious: Yes (Death)
  Sender: FDA-Public Use
  Company Number: None

PATIENT
  Age: 62 Year
  Sex: Female

DRUGS (11)
  1. ENVARSUS XR [Suspect]
     Active Substance: TACROLIMUS
     Indication: Renal transplant
     Dates: start: 20230125
  2. ALLOPURINOL TAB [Concomitant]
  3. BUMETANIDE [Concomitant]
  4. CALCITRIOL [Concomitant]
  5. CRESTOR [Concomitant]
  6. ENVARSUS XR [Concomitant]
  7. FERROUS SULF TAB 325MG [Concomitant]
  8. LANSOPRAZOLE [Concomitant]
  9. LOW DOSE ASA TAB 81MG [Concomitant]
  10. MYRBETRIQ TAB 25MG [Concomitant]
  11. PREDNISONE [Concomitant]

REACTIONS (1)
  - Death [None]

NARRATIVE: CASE EVENT DATE: 20240302
